FAERS Safety Report 15218292 (Version 3)
Quarter: 2018Q4

REPORT INFORMATION
  Report Type: Spontaneous
  Country: JP (occurrence: JP)
  Receive Date: 20180730
  Receipt Date: 20181012
  Transmission Date: 20190204
  Serious: Yes (Hospitalization, Other)
  Sender: FDA-Public Use
  Company Number: JP-AMGEN-JPNSP2018104647

PATIENT
  Age: 52 Year
  Sex: Female

DRUGS (11)
  1. CYCLOPHOSPHAMIDE. [Concomitant]
     Active Substance: CYCLOPHOSPHAMIDE
     Indication: BREAST CANCER
     Dosage: 850 MG, 1X/2 WEEKS
     Route: 041
     Dates: start: 20180419, end: 20180607
  2. PROTECADIN [Concomitant]
     Active Substance: LAFUTIDINE
     Indication: BREAST CANCER
     Dosage: 20 MG
     Route: 048
     Dates: start: 20180420, end: 20180624
  3. DECADRON [Suspect]
     Active Substance: DEXAMETHASONE
     Indication: BREAST CANCER
     Dosage: 4 MG
     Route: 048
     Dates: start: 20180420, end: 20180624
  4. DOCETAXEL. [Suspect]
     Active Substance: DOCETAXEL
     Indication: BREAST CANCER
     Dosage: 100 MG, 1X/WEEK
     Route: 041
     Dates: start: 20180621, end: 20180621
  5. EMEND [Concomitant]
     Active Substance: APREPITANT
     Indication: BREAST CANCER
     Dosage: 125 MG, 1X/2 WEEKS
     Route: 048
     Dates: start: 20180419, end: 20180621
  6. HERCEPTIN [Suspect]
     Active Substance: TRASTUZUMAB
     Indication: BREAST CANCER
     Dosage: 360 MG, 1X/WEEK
     Route: 041
     Dates: start: 20180621, end: 20180621
  7. MEROPENEM. [Concomitant]
     Active Substance: MEROPENEM
     Indication: PRODUCT USED FOR UNKNOWN INDICATION
     Dosage: UNK
     Route: 042
     Dates: start: 20180630
  8. MAXIPIME [Concomitant]
     Active Substance: CEFEPIME HYDROCHLORIDE
     Indication: PRODUCT USED FOR UNKNOWN INDICATION
     Dosage: UNK
     Route: 042
     Dates: start: 20180628
  9. G-LASTA [Suspect]
     Active Substance: PEGFILGRASTIM
     Indication: BREAST CANCER
     Dosage: 3.6 MG, Q2WK
     Route: 058
     Dates: start: 20180511, end: 20180623
  10. EPIRUBICIN                         /00699302/ [Concomitant]
     Active Substance: EPIRUBICIN
     Indication: BREAST CANCER
     Dosage: 130 MG, 1X/2 WEEKS
     Route: 041
     Dates: start: 20180419, end: 20180607
  11. EMEND [Concomitant]
     Active Substance: APREPITANT
     Dosage: 80 UNK
     Route: 048
     Dates: start: 20180420, end: 20180623

REACTIONS (4)
  - Adrenal insufficiency [Recovering/Resolving]
  - Interstitial lung disease [Recovered/Resolved]
  - Pyrexia [Recovered/Resolved]
  - Nausea [Recovered/Resolved]

NARRATIVE: CASE EVENT DATE: 20180623
